FAERS Safety Report 9642930 (Version 2)
Quarter: 2013Q4

REPORT INFORMATION
  Report Type: Spontaneous
  Country: IT (occurrence: IT)
  Receive Date: 20131024
  Receipt Date: 20131028
  Transmission Date: 20140711
  Serious: Yes (Hospitalization)
  Sender: FDA-Public Use
  Company Number: PHHY2013IT119642

PATIENT
  Age: 57 Year
  Sex: Male

DRUGS (8)
  1. COTAREG [Suspect]
     Indication: HYPERTENSION
     Dosage: 1 DF (1 POSOLOGIC UNIT) QD
     Route: 048
     Dates: start: 20080101, end: 20130320
  2. COTAREG [Suspect]
     Dosage: 0.5 DF, QD
     Route: 048
  3. NORVASC [Suspect]
     Indication: HYPERTENSION
     Dosage: 1 DF, QD
     Route: 048
     Dates: start: 20130320, end: 20130320
  4. SEACOR [Concomitant]
  5. KCL RETARD ZYMA [Concomitant]
  6. DIBASE [Concomitant]
  7. LUCEN [Concomitant]
  8. SPIRIVA [Concomitant]

REACTIONS (3)
  - Contusion [Recovering/Resolving]
  - Femur fracture [Recovering/Resolving]
  - Syncope [Recovering/Resolving]
